FAERS Safety Report 5419557-7 (Version None)
Quarter: 2007Q3

REPORT INFORMATION
  Report Type: 
  Country: None (occurrence: None)
  Receive Date: 20070815
  Receipt Date: 20070815
  Transmission Date: 20080115
  Serious: Yes (Hospitalization)
  Sender: FDA-Public Use
  Company Number: None

PATIENT
  Age: 60 Year
  Sex: Male

DRUGS (2)
  1. ASPIRIN [Suspect]
     Indication: CORONARY ARTERY DISEASE
     Dosage: 81MG  EVERY DAY  PO
     Route: 048
     Dates: start: 20050915, end: 20070406
  2. ASPIRIN [Suspect]
     Indication: PROPHYLAXIS
     Dosage: 81MG  EVERY DAY  PO
     Route: 048
     Dates: start: 20050915, end: 20070406

REACTIONS (2)
  - DISEASE RECURRENCE [None]
  - GASTROINTESTINAL HAEMORRHAGE [None]
